FAERS Safety Report 4400899-9 (Version None)
Quarter: 2004Q3

REPORT INFORMATION
  Report Type: 
  Country: None (occurrence: None)
  Receive Date: 20040907
  Receipt Date: 20030730
  Transmission Date: 20050211
  Serious: No
  Sender: FDA-Public Use
  Company Number: US-BRISTOL-MYERS SQUIBB COMPANY-12342192

PATIENT
  Sex: Female
  Weight: 55 kg

DRUGS (4)
  1. COUMADIN [Suspect]
     Indication: CARDIAC VALVE DISEASE
     Dosage: ^EXACT DATE AND DURATION UNAVAILABLE.^  ALSO REPORTED WAS DRUG TAKEN ^SINCE 3/1/03.^
     Route: 048
  2. TOPROL-XL [Concomitant]
  3. DIGITEK [Concomitant]
  4. DIOVAN [Concomitant]

REACTIONS (2)
  - CONSTIPATION [None]
  - WEIGHT DECREASED [None]
